FAERS Safety Report 17046844 (Version 3)
Quarter: 2020Q1

REPORT INFORMATION
  Report Type: Spontaneous
  Country: JP (occurrence: JP)
  Receive Date: 20191119
  Receipt Date: 20200323
  Transmission Date: 20200409
  Serious: No
  Sender: FDA-Public Use
  Company Number: JP-BEH-2019109323

PATIENT

DRUGS (2)
  1. SANGLOPOR [Suspect]
     Active Substance: HUMAN IMMUNOGLOBULIN G
     Dosage: UNK
     Route: 042
     Dates: start: 201909
  2. ALBUMINAR-25 [Suspect]
     Active Substance: ALBUMIN HUMAN
     Dosage: UNK
     Route: 065
     Dates: start: 201909

REACTIONS (1)
  - Hepatitis B surface antibody positive [Unknown]
